FAERS Safety Report 4396239-4 (Version None)
Quarter: 2004Q3

REPORT INFORMATION
  Report Type: 
  Country: None (occurrence: None)
  Receive Date: 20040713
  Receipt Date: 20040706
  Transmission Date: 20050211
  Serious: Yes (Other)
  Sender: FDA-Public Use
  Company Number: PHBS2004JP09164

PATIENT

DRUGS (1)
  1. LAMISIL [Suspect]
     Indication: NAIL TINEA
     Dosage: 125 MG/D
     Route: 048
     Dates: start: 20040625

REACTIONS (8)
  - EYE DISORDER [None]
  - MALAISE [None]
  - NASOPHARYNGEAL DISORDER [None]
  - PRURITUS [None]
  - RASH [None]
  - SUBCUTANEOUS HAEMATOMA [None]
  - SWELLING FACE [None]
  - URTICARIA [None]
